FAERS Safety Report 9325408 (Version 1)
Quarter: 2013Q2

REPORT INFORMATION
  Report Type: Spontaneous
  Country: US (occurrence: US)
  Receive Date: 20130604
  Receipt Date: 20130604
  Transmission Date: 20140414
  Serious: No
  Sender: FDA-Public Use
  Company Number: US-009507513-1305USA017488

PATIENT
  Sex: Female

DRUGS (2)
  1. NUVARING [Suspect]
     Indication: CONTRACEPTION
     Dosage: UNK
     Route: 067
     Dates: start: 201303
  2. NUVARING [Suspect]
     Dosage: UNK
     Route: 067
     Dates: start: 201304, end: 201305

REACTIONS (2)
  - Withdrawal bleed [Unknown]
  - Unintended pregnancy [Unknown]
